FAERS Safety Report 9536584 (Version 2)
Quarter: 2013Q4

REPORT INFORMATION
  Report Type: Report from Study
  Country: JP (occurrence: JP)
  Receive Date: 20130919
  Receipt Date: 20131001
  Transmission Date: 20140711
  Serious: Yes (Other)
  Sender: FDA-Public Use
  Company Number: JP-SANOFI-AVENTIS-2013SA091249

PATIENT
  Sex: 0

DRUGS (1)
  1. LASIX [Suspect]
     Indication: PROPHYLAXIS
     Dosage: STRENGTH: 20 MG INJ
     Route: 042

REACTIONS (2)
  - Renal failure acute [Unknown]
  - Blood creatinine increased [Unknown]
